FAERS Safety Report 6980748-5 (Version None)
Quarter: 2010Q3

REPORT INFORMATION
  Report Type: 
  Country: None (occurrence: None)
  Receive Date: 20100914
  Receipt Date: 20100907
  Transmission Date: 20110219
  Serious: Yes (Other)
  Sender: FDA-Public Use
  Company Number: US-WYE-H17395210

PATIENT
  Age: 6 Year
  Sex: Male
  Weight: 22.7 kg

DRUGS (3)
  1. CHILDREN'S ADVIL [Suspect]
     Indication: PYREXIA
     Dosage: 2 TEASPOONFULS 1 TIME
     Route: 048
     Dates: start: 20100904, end: 20100904
  2. CHILDREN'S ADVIL [Suspect]
     Indication: HEADACHE
  3. CHILDREN'S ADVIL [Suspect]
     Indication: VIRAL INFECTION

REACTIONS (3)
  - HYPERSENSITIVITY [None]
  - LIP SWELLING [None]
  - URTICARIA [None]
